FAERS Safety Report 5373696-8 (Version None)
Quarter: 2007Q2

REPORT INFORMATION
  Report Type: 
  Country: None (occurrence: None)
  Receive Date: 20070615
  Receipt Date: 20060801
  Transmission Date: 20071010
  Serious: Yes (Other)
  Sender: FDA-Public Use
  Company Number: 200616540US

PATIENT
  Age: 47 Year
  Sex: Male

DRUGS (6)
  1. LANTUS [Suspect]
     Indication: DIABETES MELLITUS NON-INSULIN-DEPENDENT
     Dosage: 10 U QD SC
     Route: 058
     Dates: start: 20060101
  2. PIOGLITAZONE [Concomitant]
  3. AMARYL [Concomitant]
  4. BENAZEPRIL HYDROCHLORIDE [Concomitant]
  5. ATORVASTATIN CALCIUM (LIPITOR) [Concomitant]
  6. SERTRALINE (ZOLOFT /01011401/) [Concomitant]

REACTIONS (2)
  - HYPERGLYCAEMIA [None]
  - NO ADVERSE EFFECT [None]
